FAERS Safety Report 6311328-2 (Version None)
Quarter: 2009Q3

REPORT INFORMATION
  Report Type: 
  Country: None (occurrence: None)
  Receive Date: 20090817
  Receipt Date: 20090803
  Transmission Date: 20100115
  Serious: Yes (Other)
  Sender: FDA-Public Use
  Company Number: PHHY2009GB33174

PATIENT
  Age: 44 Year
  Sex: Female

DRUGS (1)
  1. DICLOFENAC [Suspect]
     Indication: FACIAL PAIN
     Dosage: 50 MG, UNK
     Route: 048
     Dates: start: 20090501

REACTIONS (4)
  - FACIAL PAIN [None]
  - HYPOAESTHESIA FACIAL [None]
  - LIP SWELLING [None]
  - VERTIGO [None]
